FAERS Safety Report 9796409 (Version 1)
Quarter: 2014Q1

REPORT INFORMATION
  Report Type: Spontaneous
  Country: BR (occurrence: BR)
  Receive Date: 20140103
  Receipt Date: 20140103
  Transmission Date: 20141002
  Serious: Yes (Other)
  Sender: FDA-Public Use
  Company Number: BR-BAYER-2014-000519

PATIENT
  Age: 18 Year
  Sex: Female
  Weight: 53 kg

DRUGS (2)
  1. YAZ (24) [Suspect]
     Indication: CONTRACEPTION
     Dosage: 1 DF, QD
     Route: 048
     Dates: start: 201306
  2. YAZ (24) [Suspect]
     Indication: POLYCYSTIC OVARIES

REACTIONS (2)
  - Head injury [Recovered/Resolved]
  - Road traffic accident [Recovered/Resolved]
